FAERS Safety Report 9668105 (Version 2)
Quarter: 2013Q4

REPORT INFORMATION
  Report Type: Spontaneous
  Country: US (occurrence: None)
  Receive Date: 20131101
  Receipt Date: 20131122
  Transmission Date: 20140711
  Serious: Yes (Death)
  Sender: FDA-Public Use
  Company Number: 2013-385

PATIENT
  Age: 57 Year
  Sex: Female
  Weight: 62.1 kg

DRUGS (2)
  1. PRIALT [Suspect]
     Indication: INTERVERTEBRAL DISC DISORDER
     Dosage: UG,QH, INTRATHECAL
     Route: 037
     Dates: start: 2013
  2. PRIALT [Suspect]
     Indication: BACK PAIN
     Dosage: UG,QH, INTRATHECAL
     Route: 037
     Dates: start: 2013

REACTIONS (3)
  - Urinary incontinence [None]
  - Faecal incontinence [None]
  - Device dislocation [None]
